FAERS Safety Report 8342352-6 (Version None)
Quarter: 2012Q2

REPORT INFORMATION
  Report Type: 
  Country: None (occurrence: None)
  Receive Date: 20120508
  Receipt Date: 20120501
  Transmission Date: 20120825
  Serious: Yes (Hospitalization)
  Sender: FDA-Public Use
  Company Number: US-AMGEN-USASP2012027376

PATIENT
  Age: 39 Year
  Sex: Female

DRUGS (1)
  1. ENBREL [Suspect]
     Indication: PSORIATIC ARTHROPATHY
     Dosage: 50 MG, QWK
     Dates: start: 20120106, end: 20120328

REACTIONS (5)
  - FALL [None]
  - SPINAL DISORDER [None]
  - HYPOAESTHESIA [None]
  - MUSCULAR WEAKNESS [None]
  - MUSCLE SPASMS [None]
